FAERS Safety Report 4844716-1 (Version None)
Quarter: 2005Q4

REPORT INFORMATION
  Report Type: 
  Country: None (occurrence: None)
  Receive Date: 20051125
  Receipt Date: 20051110
  Transmission Date: 20060501
  Serious: Yes (Death, Life-Threatening, Hospitalization)
  Sender: FDA-Public Use
  Company Number: WAES 0509USA03477

PATIENT
  Age: 58 Year
  Sex: Male

DRUGS (3)
  1. CANCIDAS [Suspect]
     Indication: ASPERGILLOSIS
     Dosage: 50  MG IV
     Route: 042
     Dates: start: 20050914, end: 20050924
  2. VIREAD [Concomitant]
  3. ANTIMICROBIAL (UNSPECIFIED) [Concomitant]

REACTIONS (3)
  - ACUTE MYELOID LEUKAEMIA [None]
  - CONDITION AGGRAVATED [None]
  - PNEUMONIA ASPERGILLUS [None]
